FAERS Safety Report 8350094-6 (Version None)
Quarter: 2012Q2

REPORT INFORMATION
  Report Type: 
  Country: None (occurrence: None)
  Receive Date: 20120510
  Receipt Date: 20120503
  Transmission Date: 20120825
  Serious: No
  Sender: FDA-Public Use
  Company Number: US-PFIZER INC-2012096415

PATIENT
  Sex: Male

DRUGS (2)
  1. COMPAZINE [Concomitant]
     Indication: NAUSEA
     Dosage: USED INTERMITTENTLY
  2. XALKORI [Suspect]
     Indication: LUNG NEOPLASM MALIGNANT
     Dosage: 250 MG, 2X/DAY
     Route: 048
     Dates: start: 20120401

REACTIONS (3)
  - PHOTOPHOBIA [None]
  - VITREOUS FLOATERS [None]
  - NAUSEA [None]
